FAERS Safety Report 26116808 (Version 1)
Quarter: 2025Q4

REPORT INFORMATION
  Report Type: Other
  Country: CN (occurrence: CN)
  Receive Date: 20251203
  Receipt Date: 20251203
  Transmission Date: 20260118
  Serious: Yes (Other)
  Sender: EMD SERONO INC
  Company Number: CN-Merck Healthcare KGaA-2025060869

PATIENT
  Age: 71 Year
  Sex: Male
  Weight: 44 kg

DRUGS (10)
  1. LEVOTHYROXINE [Suspect]
     Active Substance: LEVOTHYROXINE
     Indication: Hypothyroidism
     Dosage: 100 UG/DAY
  2. ECONAZOLE [Concomitant]
     Active Substance: ECONAZOLE
     Indication: Pityriasis rosea
  3. HALOMETASONE [Concomitant]
     Active Substance: HALOMETASONE
     Indication: Pityriasis rosea
  4. IBUPROFEN [Concomitant]
     Active Substance: IBUPROFEN
     Indication: Pyrexia
  5. NEDAPLATIN [Concomitant]
     Active Substance: NEDAPLATIN
     Indication: Oesophageal squamous cell carcinoma
  6. NIFEDIPINE [Concomitant]
     Active Substance: NIFEDIPINE
     Indication: Hypertension
  7. OLOPATADINE [Concomitant]
     Active Substance: OLOPATADINE
     Indication: Pityriasis rosea
  8. PACLITAXEL [Concomitant]
     Active Substance: PACLITAXEL
     Indication: Oesophageal squamous cell carcinoma
  9. SINTILIMAB [Concomitant]
     Active Substance: SINTILIMAB
     Indication: Oesophageal squamous cell carcinoma
  10. TRIAMCINOLONE ACETONIDE [Concomitant]
     Active Substance: TRIAMCINOLONE ACETONIDE
     Indication: Pityriasis rosea

REACTIONS (2)
  - Adrenocortical insufficiency acute [Recovered/Resolved]
  - Contraindicated product administered [Recovered/Resolved]
